FAERS Safety Report 9063578 (Version 2)
Quarter: 2013Q1

REPORT INFORMATION
  Report Type: Spontaneous
  Country: FR (occurrence: FR)
  Receive Date: 20130213
  Receipt Date: 20130225
  Transmission Date: 20140127
  Serious: Yes (Life-Threatening, Hospitalization)
  Sender: FDA-Public Use
  Company Number: FR-TEVA-384070ISR

PATIENT
  Age: 58 None
  Sex: Female

DRUGS (5)
  1. METHOTREXATE [Suspect]
     Indication: BREAST CANCER METASTATIC
     Route: 041
     Dates: start: 20130115, end: 20130118
  2. METHYLPREDNISOLONE MYLAN [Concomitant]
     Indication: PREMEDICATION
     Dosage: 120 MILLIGRAM DAILY;
     Route: 042
  3. TRANXENE [Concomitant]
     Indication: PREMEDICATION
     Dosage: 20 MILLIGRAM DAILY;
     Route: 042
  4. ONDANSETRON [Concomitant]
     Indication: PREMEDICATION
     Dosage: 8 MILLIGRAM DAILY;
     Route: 042
  5. GLUCOSE 5% [Concomitant]
     Indication: PREMEDICATION
     Route: 042

REACTIONS (10)
  - Cardio-respiratory arrest [Recovered/Resolved]
  - Anaphylactic shock [Recovered/Resolved]
  - Pulmonary embolism [Recovered/Resolved]
  - Pruritus generalised [Recovered/Resolved]
  - Face oedema [Recovered/Resolved]
  - Hypoxia [Recovered/Resolved]
  - Myocardial infarction [None]
  - Infection [None]
  - Hypokalaemia [None]
  - Blood pH decreased [None]
